FAERS Safety Report 10093973 (Version 3)
Quarter: 2014Q2

REPORT INFORMATION
  Report Type: Spontaneous
  Country: CN (occurrence: CN)
  Receive Date: 20140421
  Receipt Date: 20140522
  Transmission Date: 20141212
  Serious: Yes (Hospitalization, Other)
  Sender: FDA-Public Use
  Company Number: CN-009507513-1404CHN010413

PATIENT
  Age: 26 Year
  Sex: Male
  Weight: 60 kg

DRUGS (1)
  1. PEG-INTRON [Suspect]
     Indication: CHRONIC HEPATITIS B
     Dosage: 80 MICROGRAM, QW
     Route: 058
     Dates: start: 20130413

REACTIONS (1)
  - Bone marrow failure [Not Recovered/Not Resolved]
